FAERS Safety Report 4957995-7 (Version None)
Quarter: 2006Q1

REPORT INFORMATION
  Report Type: 
  Country: None (occurrence: None)
  Receive Date: 20060330
  Receipt Date: 20051219
  Transmission Date: 20060701
  Serious: No
  Sender: FDA-Public Use
  Company Number: US-BRISTOL-MYERS SQUIBB COMPANY-13223094

PATIENT
  Age: 36 Year
  Sex: Male

DRUGS (4)
  1. REYATAZ [Suspect]
     Indication: HIV INFECTION
  2. ZIAGEN [Suspect]
     Indication: HIV INFECTION
  3. VIREAD [Suspect]
     Indication: HIV INFECTION
  4. NORVIR [Suspect]

REACTIONS (2)
  - ASTHENIA [None]
  - MALAISE [None]
